FAERS Safety Report 25684511 (Version 1)
Quarter: 2025Q3

REPORT INFORMATION
  Report Type: Spontaneous
  Country: US (occurrence: US)
  Receive Date: 20250815
  Receipt Date: 20250815
  Transmission Date: 20251020
  Serious: Yes (Death)
  Sender: ROCHE
  Company Number: US-ROCHE-10000365046

PATIENT
  Age: 54 Year
  Sex: Female

DRUGS (1)
  1. ACTEMRA [Suspect]
     Active Substance: TOCILIZUMAB
     Indication: Rheumatoid arthritis
     Dosage: STRENGTH AND DOSE:162MG/0.9M
     Route: 058
     Dates: start: 202103

REACTIONS (1)
  - Death [Fatal]

NARRATIVE: CASE EVENT DATE: 20250728
